FAERS Safety Report 26161046 (Version 1)
Quarter: 2025Q4

REPORT INFORMATION
  Report Type: Spontaneous
  Country: US (occurrence: US)
  Receive Date: 20251216
  Receipt Date: 20251216
  Transmission Date: 20260118
  Serious: No
  Sender: ALVOGEN
  Company Number: US-ALVOGEN-2024096003

PATIENT
  Sex: Female

DRUGS (2)
  1. FENTANYL [Suspect]
     Active Substance: FENTANYL
     Indication: Pain
     Dosage: STRENGTH: 25 MCG/HOUR
  2. FENTANYL [Suspect]
     Active Substance: FENTANYL
     Indication: Pain
     Dosage: STRENGTH: 100 MCG/HOUR; 5 PACK?WORKED MY WAY UP FROM THE LOWEST 25 MCG/HR

REACTIONS (2)
  - Device malfunction [Unknown]
  - Device adhesion issue [Unknown]
